FAERS Safety Report 5877475-4 (Version None)
Quarter: 2008Q3

REPORT INFORMATION
  Report Type: 
  Country: None (occurrence: None)
  Receive Date: 20080909
  Receipt Date: 20080826
  Transmission Date: 20090109
  Serious: Yes (Hospitalization)
  Sender: FDA-Public Use
  Company Number: 1-16568124

PATIENT
  Sex: Male
  Weight: 98.4306 kg

DRUGS (11)
  1. AMIODARONE HCL [Suspect]
     Indication: ATRIAL FIBRILLATION
     Dosage: 200 MG TWICE DAILY, ORAL
     Route: 048
     Dates: start: 20080808, end: 20080813
  2. AMIODARONE HCL [Suspect]
     Indication: ATRIAL FIBRILLATION
     Dosage: 200 MG TWICE DAILY, ORAL
     Route: 048
     Dates: start: 20080821, end: 20080827
  3. LISINOPRIL [Concomitant]
  4. ASPIRIN [Concomitant]
  5. UMECTA 1000 MG [Concomitant]
  6. PROTONIX [Concomitant]
  7. FLAX SEED OIL 1000 MG [Concomitant]
  8. COUMADIN [Concomitant]
  9. NORVASC [Concomitant]
  10. CRESTOR [Concomitant]
  11. ZETIA [Concomitant]

REACTIONS (5)
  - FAECES DISCOLOURED [None]
  - FATIGUE [None]
  - GASTRIC MUCOSAL LESION [None]
  - GASTROENTERITIS [None]
  - HYPERHIDROSIS [None]
